FAERS Safety Report 23195567 (Version 2)
Quarter: 2023Q4

REPORT INFORMATION
  Report Type: Report from Study
  Country: CA (occurrence: CA)
  Receive Date: 20231117
  Receipt Date: 20231130
  Transmission Date: 20240110
  Serious: Yes (Other)
  Sender: FDA-Public Use
  Company Number: CA-JNJFOC-20231116272

PATIENT
  Age: 43 Year
  Sex: Female

DRUGS (2)
  1. STELARA [Suspect]
     Active Substance: USTEKINUMAB
     Indication: Crohn^s disease
     Route: 058
     Dates: start: 20190729
  2. STELARA [Suspect]
     Active Substance: USTEKINUMAB

REACTIONS (9)
  - Fall [Unknown]
  - Hand fracture [Unknown]
  - Contusion [Unknown]
  - Blood viscosity increased [Unknown]
  - Headache [Unknown]
  - Fatigue [Unknown]
  - Device issue [Unknown]
  - Incorrect dose administered [Unknown]
  - Off label use [Unknown]

NARRATIVE: CASE EVENT DATE: 20190729
